FAERS Safety Report 7729814-7 (Version None)
Quarter: 2011Q3

REPORT INFORMATION
  Report Type: 
  Country: None (occurrence: None)
  Receive Date: 20110906
  Receipt Date: 20110829
  Transmission Date: 20111222
  Serious: Yes (Death, Life-Threatening, Other)
  Sender: FDA-Public Use
  Company Number: JP-ROCHE-749649

PATIENT
  Sex: Male

DRUGS (25)
  1. TOCILIZUMAB [Suspect]
     Dosage: ROUTE: INTRAVENOUS DRIP, FORM: INJECTION
     Route: 041
     Dates: start: 20090713, end: 20090713
  2. TOCILIZUMAB [Suspect]
     Dosage: ROUTE: INTRAVENOUS DRIP, FORM: INJECTION
     Route: 041
     Dates: start: 20091005, end: 20091005
  3. PREDNISOLONE [Concomitant]
     Dosage: FORM: PERORAL AGENT.
     Route: 048
     Dates: start: 20081101, end: 20081118
  4. FLAVERIC [Concomitant]
     Route: 048
     Dates: start: 20051026, end: 20101118
  5. LOXONIN [Concomitant]
     Dosage: DOSE FORM: PERORAL AGENT
     Route: 048
     Dates: start: 20071024, end: 20101118
  6. TOCILIZUMAB [Suspect]
     Dosage: ROUTE: INTRAVENOUS DRIP, FORM: INJECTION
     Route: 041
     Dates: start: 20090810, end: 20090810
  7. TOCILIZUMAB [Suspect]
     Dosage: ROUTE: INTRAVENOUS DRIP, FORM: INJECTION
     Route: 041
     Dates: start: 20091130, end: 20091130
  8. TOCILIZUMAB [Suspect]
     Dosage: ROUTE: INTRAVENOUS DRIP, FORM: INJECTION
     Route: 041
     Dates: start: 20100125, end: 20101101
  9. LASIX [Concomitant]
     Dosage: FORM: PERORAL AGENT.
     Route: 048
     Dates: start: 20100323, end: 20101118
  10. LANIRAPID [Concomitant]
     Route: 048
     Dates: start: 20100323, end: 20101118
  11. RHEUMATREX [Concomitant]
     Route: 048
     Dates: start: 20070919, end: 20101118
  12. PREDNISOLONE [Concomitant]
     Dosage: DOSE FORM: PERORAL AGENT
     Route: 048
     Dates: start: 20080630, end: 20080824
  13. TOCILIZUMAB [Suspect]
     Indication: RHEUMATOID ARTHRITIS
     Dosage: ROUTE: INTRAVENOUS DRIP, FORM: INJECTION
     Route: 041
     Dates: start: 20090615, end: 20090615
  14. TOCILIZUMAB [Suspect]
     Dosage: ROUTE: INTRAVENOUS DRIP, FORM: INJECTION
     Route: 041
     Dates: start: 20090907, end: 20090907
  15. RIMATIL [Concomitant]
     Dosage: DOSE FORM: PERORAL AGENT
     Route: 048
     Dates: start: 20051026, end: 20101031
  16. PREDNISOLONE [Concomitant]
     Dosage: DOSE FORM: PERORAL AGENT
     Route: 048
     Dates: start: 20080825, end: 20081031
  17. FOLIC ACID [Concomitant]
     Dosage: DOSE FORM: PERORAL AGENT
     Route: 048
     Dates: start: 20080825, end: 20101118
  18. TOCILIZUMAB [Suspect]
     Dosage: ROUTE: INTRAVENOUS DRIP, FORM: INJECTION
     Route: 041
     Dates: start: 20091228, end: 20091228
  19. PREDNISOLONE [Concomitant]
     Dosage: DOSE FORM: PERORAL AGENT
     Route: 048
     Dates: end: 20080629
  20. CYTOTEC [Concomitant]
     Dosage: DOSE FORM: PERORAL AGENT
     Route: 048
     Dates: start: 20071024, end: 20101118
  21. KETOPROFEN [Concomitant]
     Dosage: DRUG NAME REPORTED AS: MOHRUS TAPE L, DOSE FORM: TAPE
     Route: 061
  22. DIOVAN [Concomitant]
     Dosage: FORM: PERORAL AGENT.
     Route: 048
     Dates: start: 20100125, end: 20101118
  23. CARVEDILOL [Concomitant]
     Route: 048
     Dates: start: 20100614, end: 20101118
  24. TOCILIZUMAB [Suspect]
     Dosage: ROUTE: INTRAVENOUS DRIP, FORM: INJECTION
     Route: 041
     Dates: start: 20091102, end: 20091102
  25. MUCODYNE [Concomitant]
     Dosage: DOSE FORM: PERORAL AGENT
     Route: 048
     Dates: start: 20051026, end: 20101118

REACTIONS (3)
  - CARDIAC FAILURE [None]
  - RESPIRATORY FAILURE [None]
  - PULMONARY OEDEMA [None]
